FAERS Safety Report 13709136 (Version 1)
Quarter: 2017Q2

REPORT INFORMATION
  Report Type: Spontaneous
  Country: US (occurrence: US)
  Receive Date: 20170630
  Receipt Date: 20170630
  Transmission Date: 20170830
  Serious: Yes (Disabling)
  Sender: FDA-Public Use
  Company Number: None

PATIENT
  Age: 73 Year
  Sex: Female
  Weight: 51.75 kg

DRUGS (5)
  1. CALCIUM [Concomitant]
     Active Substance: CALCIUM
  2. ALENDRONATE SODIUM 70 MG TABLET TEVA PHARMACEUTICALS USA [Suspect]
     Active Substance: ALENDRONATE SODIUM
     Indication: OSTEOPOROSIS
     Dosage: ?          OTHER STRENGTH:MG;QUANTITY:1 TABLET(S);OTHER FREQUENCY:ONE DAY /WEEK;?
     Route: 048
     Dates: start: 20170517, end: 20170628
  3. PSYLLIUM [Concomitant]
     Active Substance: PLANTAGO SEED
  4. VITAMIN D3 [Concomitant]
     Active Substance: CHOLECALCIFEROL
  5. FISH OIL [Concomitant]
     Active Substance: FISH OIL

REACTIONS (2)
  - Middle insomnia [None]
  - Bone pain [None]

NARRATIVE: CASE EVENT DATE: 20170627
